FAERS Safety Report 18188443 (Version 3)
Quarter: 2020Q3

REPORT INFORMATION
  Report Type: Spontaneous
  Country: FR (occurrence: FR)
  Receive Date: 20200824
  Receipt Date: 20200924
  Transmission Date: 20201103
  Serious: Yes (Hospitalization)
  Sender: FDA-Public Use
  Company Number: FR-MYLANLABS-2020M1072739

PATIENT
  Sex: Female

DRUGS (3)
  1. BUPIVACAINE MYLAN 20 MG/4 ML, SOLUTION FOR INJECTION [Suspect]
     Active Substance: BUPIVACAINE
     Indication: ANAESTHESIA
     Dosage: UNK
  2. MORPHINE [Suspect]
     Active Substance: MORPHINE
     Indication: ANAESTHESIA
     Dosage: UNK
  3. SUFENTANIL [Suspect]
     Active Substance: SUFENTANIL
     Indication: ANAESTHESIA
     Dosage: UNK

REACTIONS (2)
  - Maternal exposure during pregnancy [Unknown]
  - Drug ineffective [Unknown]

NARRATIVE: CASE EVENT DATE: 20200805
